FAERS Safety Report 5536610-8 (Version None)
Quarter: 2007Q4

REPORT INFORMATION
  Report Type: 
  Country: None (occurrence: None)
  Receive Date: 20071206
  Receipt Date: 20070904
  Transmission Date: 20080405
  Serious: Yes (Other)
  Sender: FDA-Public Use
  Company Number: US-AMGEN-KDL237417

PATIENT
  Sex: Female

DRUGS (7)
  1. ENBREL [Suspect]
     Indication: PSORIATIC ARTHROPATHY
     Route: 058
     Dates: start: 20060817, end: 20070822
  2. ENBREL [Suspect]
     Indication: PSORIASIS
  3. DIFLORASONE DIACETATE [Concomitant]
     Route: 061
     Dates: start: 20060809
  4. DERMA-SMOOTHE [Concomitant]
     Route: 061
     Dates: start: 20060721
  5. LOCOID [Concomitant]
     Route: 061
     Dates: start: 20060313
  6. METHOTREXATE [Concomitant]
     Dates: start: 20060416, end: 20061001
  7. UNSPECIFIED TOPICAL PRODUCT [Concomitant]
     Route: 061
     Dates: start: 20060607

REACTIONS (1)
  - BREAST CANCER IN SITU [None]
